FAERS Safety Report 5103968-3 (Version None)
Quarter: 2006Q3

REPORT INFORMATION
  Report Type: 
  Country: None (occurrence: None)
  Receive Date: 20060911
  Receipt Date: 20060828
  Transmission Date: 20061208
  Serious: Yes (Death)
  Sender: FDA-Public Use
  Company Number: 2006JP002391

PATIENT
  Age: 52 Year
  Sex: Male
  Weight: 78.5 kg

DRUGS (9)
  1. PROGRAF [Suspect]
     Indication: RENAL TRANSPLANT
     Dosage: 2 MG, BID, ORAL; 3MG, D, ORAL
     Route: 048
     Dates: start: 20040301, end: 20060109
  2. PROGRAF [Suspect]
     Indication: RENAL TRANSPLANT
     Dosage: 2 MG, BID, ORAL; 3MG, D, ORAL
     Route: 048
     Dates: start: 20060110
  3. CELLCEPT [Suspect]
     Indication: RENAL TRANSPLANT
     Dosage: 500 MG, BID, ORAL
     Route: 048
     Dates: start: 20040301, end: 20060112
  4. SIMULECT [Suspect]
     Indication: RENAL TRANSPLANT
     Dosage: 20 MG, UID/QD, IV NOS
     Route: 042
     Dates: start: 20040303, end: 20040303
  5. MEDROL ACETATE [Concomitant]
  6. LANSOPRAZOLE [Concomitant]
  7. AMLODIPINE BESYLATE [Concomitant]
  8. URINORM (BENZBROMARONE) [Concomitant]
  9. BLOPRESS (CANDESARTAN CILEXETIL) [Concomitant]

REACTIONS (10)
  - COMPLICATIONS OF TRANSPLANTED KIDNEY [None]
  - CONDITION AGGRAVATED [None]
  - EPSTEIN-BARR VIRUS INFECTION [None]
  - HAEMODIALYSIS [None]
  - IMMUNOSUPPRESSION [None]
  - LYMPHOPROLIFERATIVE DISORDER [None]
  - METASTASES TO LUNG [None]
  - PNEUMOCYSTIS JIROVECI PNEUMONIA [None]
  - T-CELL LYMPHOMA [None]
  - TRANSPLANT FAILURE [None]
